FAERS Safety Report 23442369 (Version 1)
Quarter: 2024Q1

REPORT INFORMATION
  Report Type: Spontaneous
  Country: US (occurrence: US)
  Receive Date: 20240125
  Receipt Date: 20240125
  Transmission Date: 20240409
  Serious: No
  Sender: FDA-Public Use
  Company Number: US-ELI_LILLY_AND_COMPANY-US202401014031

PATIENT
  Sex: Male

DRUGS (1)
  1. BASAGLAR [Suspect]
     Active Substance: INSULIN GLARGINE
     Indication: Product used for unknown indication
     Dosage: 30 U, UNKNOWN
     Route: 065

REACTIONS (4)
  - Illness [Recovered/Resolved]
  - Nausea [Recovered/Resolved]
  - Blood glucose increased [Unknown]
  - Blood glucose decreased [Recovered/Resolved]
